FAERS Safety Report 19483930 (Version 2)
Quarter: 2021Q3

REPORT INFORMATION
  Report Type: Spontaneous
  Country: HR (occurrence: HR)
  Receive Date: 20210701
  Receipt Date: 20210810
  Transmission Date: 20211014
  Serious: Yes (Other)
  Sender: FDA-Public Use
  Company Number: HR-ASTRAZENECA-2021A554930

PATIENT
  Age: 45 Year
  Sex: Female

DRUGS (3)
  1. RIBOCICLIB. [Suspect]
     Active Substance: RIBOCICLIB
     Indication: TRIPLE NEGATIVE BREAST CANCER
     Route: 065
     Dates: start: 201911
  2. DENOSUMAB [Concomitant]
     Active Substance: DENOSUMAB
     Indication: PRODUCT USED FOR UNKNOWN INDICATION
  3. FULVESTRANT. [Suspect]
     Active Substance: FULVESTRANT
     Indication: TRIPLE NEGATIVE BREAST CANCER
     Dosage: UNKNOWN
     Route: 030
     Dates: start: 201911

REACTIONS (3)
  - Triple negative breast cancer [Not Recovered/Not Resolved]
  - Malignant neoplasm progression [Not Recovered/Not Resolved]
  - Fatigue [Recovered/Resolved]

NARRATIVE: CASE EVENT DATE: 2020
